FAERS Safety Report 10770902 (Version 1)
Quarter: 2015Q1

REPORT INFORMATION
  Report Type: Spontaneous
  Country: US (occurrence: None)
  Receive Date: 20150206
  Receipt Date: 20150206
  Transmission Date: 20150721
  Serious: No
  Sender: FDA-Public Use
  Company Number: HYP201307-000039

PATIENT
  Age: 34 Year
  Sex: Female
  Weight: 68.03 kg

DRUGS (5)
  1. UNSPECIFIED ALLERGY MEDICATION [Concomitant]
  2. CITRULLINE [Concomitant]
     Active Substance: CITRULLINE
  3. VITAMINS [Concomitant]
     Active Substance: VITAMINS
  4. RAVICTI [Suspect]
     Active Substance: GLYCEROL PHENYLBUTYRATE
     Indication: UREA CYCLE ENZYME DEFICIENCY
     Route: 048
     Dates: start: 20130619
  5. CALCIUM [Concomitant]
     Active Substance: CALCIUM

REACTIONS (2)
  - Hyperhidrosis [None]
  - Blepharospasm [None]

NARRATIVE: CASE EVENT DATE: 20130619
